FAERS Safety Report 5289670-6 (Version None)
Quarter: 2007Q2

REPORT INFORMATION
  Report Type: 
  Country: None (occurrence: None)
  Receive Date: 20070406
  Receipt Date: 20070330
  Transmission Date: 20071010
  Serious: Yes (Death, Hospitalization)
  Sender: FDA-Public Use
  Company Number: CA-AVENTIS-200620067GDDC

PATIENT
  Age: 40 Year
  Sex: Female
  Weight: 79.3 kg

DRUGS (11)
  1. DOCETAXEL [Suspect]
     Route: 042
     Dates: start: 20051011, end: 20051011
  2. DOCETAXEL [Suspect]
     Route: 042
     Dates: start: 20051101, end: 20060629
  3. OTHER ANTINEOPLASTIC AGENTS [Suspect]
     Route: 048
     Dates: start: 20051011, end: 20051101
  4. OTHER ANTINEOPLASTIC AGENTS [Suspect]
     Route: 048
     Dates: start: 20051102, end: 20060312
  5. OTHER ANTINEOPLASTIC AGENTS [Suspect]
     Route: 048
     Dates: start: 20061113
  6. SERAX                              /00040901/ [Concomitant]
     Route: 048
     Dates: start: 20050701
  7. SYNTHROID [Concomitant]
     Route: 048
     Dates: start: 19970113
  8. DILAUDID                           /00080902/ [Concomitant]
     Route: 048
     Dates: start: 20051026
  9. MAGIC MOUTHWASH [Concomitant]
     Route: 048
     Dates: start: 20051011, end: 20060727
  10. MOTRIN [Concomitant]
     Route: 048
     Dates: start: 20060701, end: 20060727
  11. LOPERAMIDE HCL [Concomitant]
     Route: 048
     Dates: start: 20051208

REACTIONS (7)
  - CAPILLARY LEAK SYNDROME [None]
  - DIARRHOEA [None]
  - DISEASE PROGRESSION [None]
  - DYSPNOEA [None]
  - PLEURAL EFFUSION [None]
  - PNEUMONITIS [None]
  - RESPIRATORY FAILURE [None]
